FAERS Safety Report 8557224-1 (Version None)
Quarter: 2012Q3

REPORT INFORMATION
  Report Type: 
  Country: None (occurrence: None)
  Receive Date: 20120801
  Receipt Date: 20120731
  Transmission Date: 20120928
  Serious: Yes (Other)
  Sender: FDA-Public Use
  Company Number: PHHY2011CN91786

PATIENT
  Age: 26 Year
  Sex: Female

DRUGS (1)
  1. SEBIVO [Suspect]
     Indication: HEPATITIS B
     Dosage: 600 MG, DAILY
     Route: 048
     Dates: start: 20101029

REACTIONS (3)
  - HEART RATE INCREASED [None]
  - MATERNAL EXPOSURE DURING PREGNANCY [None]
  - HYPOTENSION [None]
